FAERS Safety Report 20797849 (Version 1)
Quarter: 2022Q2

REPORT INFORMATION
  Report Type: Spontaneous
  Country: US (occurrence: None)
  Receive Date: 20220506
  Receipt Date: 20220506
  Transmission Date: 20220721
  Serious: Yes (Other)
  Sender: FDA-Public Use
  Company Number: None

PATIENT
  Age: 33 Year
  Sex: Female
  Weight: 57.15 kg

DRUGS (1)
  1. ETONOGESTREL/ETHINYL ESTRADIOL [Suspect]
     Active Substance: ETHINYL ESTRADIOL\ETONOGESTREL
     Indication: Heavy menstrual bleeding
     Dosage: FREQUENCY : MONTHLY;?VAGINAL RING
     Route: 067
     Dates: start: 20220425, end: 20220503

REACTIONS (4)
  - Vulvovaginal swelling [None]
  - Vaginal lesion [None]
  - Vulvovaginal pain [None]
  - Vulvovaginal discomfort [None]

NARRATIVE: CASE EVENT DATE: 20220504
